FAERS Safety Report 5137554-6 (Version None)
Quarter: 2006Q4

REPORT INFORMATION
  Report Type: 
  Country: None (occurrence: None)
  Receive Date: 20061030
  Receipt Date: 20051118
  Transmission Date: 20070319
  Serious: No
  Sender: FDA-Public Use
  Company Number: US-GLAXOSMITHKLINE-A0582916A

PATIENT
  Age: 58 Year
  Sex: Female
  Weight: 123.6 kg

DRUGS (7)
  1. ADVAIR HFA [Suspect]
     Indication: CHRONIC OBSTRUCTIVE PULMONARY DISEASE
     Route: 055
  2. PREMARIN [Concomitant]
     Dosage: .3MG PER DAY
     Route: 048
  3. FLONASE [Concomitant]
     Route: 045
  4. NASONEX [Concomitant]
     Route: 065
  5. TOPROL-XL [Concomitant]
     Dosage: 25MG PER DAY
     Route: 048
  6. DIOVAN [Concomitant]
     Dosage: .5TAB PER DAY
     Route: 048
  7. CLARINEX [Concomitant]
     Dosage: 5MG PER DAY
     Route: 048

REACTIONS (1)
  - OEDEMA PERIPHERAL [None]
